FAERS Safety Report 20105172 (Version 1)
Quarter: 2021Q4

REPORT INFORMATION
  Report Type: Spontaneous
  Country: US (occurrence: US)
  Receive Date: 20211124
  Receipt Date: 20211124
  Transmission Date: 20220303
  Serious: Yes (Hospitalization, Other)
  Sender: FDA-Public Use
  Company Number: US-SA-SAC20211117001462

PATIENT
  Age: 82 Year
  Sex: Female

DRUGS (12)
  1. DUPIXENT [Suspect]
     Active Substance: DUPILUMAB
  2. LOSARTAN POTASSIUM [Concomitant]
     Active Substance: LOSARTAN POTASSIUM
     Dosage: UNK UNK, QD
  3. ATORVASTATIN CALCIUM [Concomitant]
     Active Substance: ATORVASTATIN CALCIUM
  4. PLAVIX [Concomitant]
     Active Substance: CLOPIDOGREL BISULFATE
     Dosage: 1 DF, QD
     Route: 048
  5. ASPIRIN [Concomitant]
     Active Substance: ASPIRIN
     Dosage: UNK, BID
     Route: 048
  6. PROPRANOLOL HYDROCHLORIDE [Concomitant]
     Active Substance: PROPRANOLOL HYDROCHLORIDE
     Dosage: UNK, BID
     Route: 048
  7. GLIPIZIDE [Concomitant]
     Active Substance: GLIPIZIDE
     Route: 048
  8. ALLOPURINOL [Concomitant]
     Active Substance: ALLOPURINOL
     Dosage: 1 DF, QD
     Route: 048
  9. MELOXICAM [Concomitant]
     Active Substance: MELOXICAM
     Dosage: UNK
     Route: 048
  10. PRAVASTATIN SODIUM [Concomitant]
     Active Substance: PRAVASTATIN SODIUM
     Dosage: 1 DF, QD
  11. ECOTRIN [Concomitant]
     Active Substance: ASPIRIN
  12. OCUVITE [ASCORBIC ACID;RETINOL;TOCOPHEROL] [Concomitant]
     Route: 048

REACTIONS (11)
  - Gastric ulcer [Unknown]
  - Gastrointestinal haemorrhage [Unknown]
  - Squamous cell carcinoma [Unknown]
  - Hospitalisation [Unknown]
  - Asthenia [Unknown]
  - Foreign body in gastrointestinal tract [Unknown]
  - Anaemia [Unknown]
  - Abdominal pain upper [Unknown]
  - Dermatitis [Unknown]
  - Exposure to radiation [Unknown]
  - Seborrhoeic keratosis [Unknown]
